FAERS Safety Report 6090212-6 (Version None)
Quarter: 2009Q1

REPORT INFORMATION
  Report Type: 
  Country: None (occurrence: None)
  Receive Date: 20090224
  Receipt Date: 20081210
  Transmission Date: 20090719
  Serious: No
  Sender: FDA-Public Use
  Company Number: US-ABBOTT-08P-163-0492314-00

PATIENT
  Sex: Female
  Weight: 88.076 kg

DRUGS (6)
  1. SIMCOR [Suspect]
     Indication: BLOOD TRIGLYCERIDES INCREASED
     Dosage: 1-500/20 MG TABLET DAILY
     Dates: start: 20081209
  2. LASIX [Concomitant]
     Indication: DRUG USE FOR UNKNOWN INDICATION
  3. VASOTEC [Concomitant]
     Indication: DRUG USE FOR UNKNOWN INDICATION
  4. PRILOSEC [Concomitant]
     Indication: DRUG USE FOR UNKNOWN INDICATION
  5. OXYBUTYNIN CHLORIDE [Concomitant]
     Indication: DRUG USE FOR UNKNOWN INDICATION
     Dosage: UNKNOWN
  6. AMBIEN [Concomitant]
     Indication: INSOMNIA

REACTIONS (2)
  - FLUSHING [None]
  - PRURITUS [None]
